FAERS Safety Report 19139713 (Version 4)
Quarter: 2021Q3

REPORT INFORMATION
  Report Type: Spontaneous
  Country: US (occurrence: US)
  Receive Date: 20210415
  Receipt Date: 20210722
  Transmission Date: 20211014
  Serious: Yes (Other)
  Sender: FDA-Public Use
  Company Number: US-BAYER-2021-121055

PATIENT
  Age: 36 Year
  Sex: Male

DRUGS (3)
  1. KOVALTRY [Suspect]
     Active Substance: ANTIHEMOPHILIC FACTOR, HUMAN RECOMBINANT
     Dosage: 1624?4060 UNITS
  2. KOVALTRY [Suspect]
     Active Substance: ANTIHEMOPHILIC FACTOR, HUMAN RECOMBINANT
     Dosage: USED 2 ADDITIONAL DOSES SINCE APRIL TO RESOLVE THE RIGHT HIP BLEED FROM BIKE INJURY
  3. KOVALTRY [Suspect]
     Active Substance: ANTIHEMOPHILIC FACTOR, HUMAN RECOMBINANT
     Dosage: 1604?2005 MODERATE 3208?4010 SEVERE UNITS
     Route: 042

REACTIONS (4)
  - Traumatic haemorrhage [Recovered/Resolved]
  - Ligament sprain [None]
  - Injury [Recovered/Resolved]
  - Nervous system disorder [Recovered/Resolved]

NARRATIVE: CASE EVENT DATE: 20210328
